FAERS Safety Report 19387602 (Version 1)
Quarter: 2021Q2

REPORT INFORMATION
  Report Type: Spontaneous
  Country: US (occurrence: US)
  Receive Date: 20210607
  Receipt Date: 20210607
  Transmission Date: 20210717
  Serious: No
  Sender: FDA-Public Use
  Company Number: US-PERRIGO-20US018734

PATIENT
  Sex: Female
  Weight: 58.96 kg

DRUGS (4)
  1. MINOXIDIL. [Suspect]
     Active Substance: MINOXIDIL
     Dosage: 2 CAPFULS, QD
     Route: 061
     Dates: start: 20201228, end: 20201230
  2. MINOXIDIL. [Suspect]
     Active Substance: MINOXIDIL
     Dosage: 2 CAPFULS, QD
     Route: 061
     Dates: start: 20201214, end: 20201219
  3. VITAMINS NOS [Concomitant]
     Active Substance: VITAMINS
     Indication: SUPPLEMENTATION THERAPY
     Dosage: UNK
     Route: 065
     Dates: start: 2017
  4. MINOXIDIL. [Suspect]
     Active Substance: MINOXIDIL
     Indication: ALOPECIA
     Dosage: 2 CAPFULS, QD
     Route: 061
     Dates: start: 2017, end: 20201213

REACTIONS (3)
  - Product administered at inappropriate site [Recovered/Resolved]
  - Incorrect dose administered [Recovered/Resolved]
  - Wrong technique in product usage process [Recovered/Resolved]

NARRATIVE: CASE EVENT DATE: 2017
